FAERS Safety Report 16123710 (Version 3)
Quarter: 2020Q2

REPORT INFORMATION
  Report Type: Report from Study
  Country: US (occurrence: US)
  Receive Date: 20190327
  Receipt Date: 20200629
  Transmission Date: 20200713
  Serious: Yes (Other)
  Sender: FDA-Public Use
  Company Number: US-JAZZ-2018-US-015289

PATIENT
  Age: 65 Year
  Sex: Female

DRUGS (39)
  1. ALENDRONATE SODIUM. [Concomitant]
     Active Substance: ALENDRONATE SODIUM
  2. CEFALEXIN [Concomitant]
     Active Substance: CEPHALEXIN
  3. DEXTROAMPHETAMINE SULFATE. [Concomitant]
     Active Substance: DEXTROAMPHETAMINE SULFATE
  4. IRON [Concomitant]
     Active Substance: IRON
  5. KETOCONAZOLE. [Concomitant]
     Active Substance: KETOCONAZOLE
  6. CLONAZEPAM. [Concomitant]
     Active Substance: CLONAZEPAM
  7. LIDOCAINE. [Concomitant]
     Active Substance: LIDOCAINE
  8. VALTREX [Concomitant]
     Active Substance: VALACYCLOVIR HYDROCHLORIDE
  9. HYDROCODONE BITARTRATE AND ACETAMINOPHEN [Concomitant]
     Active Substance: ACETAMINOPHEN\HYDROCODONE BITARTRATE
  10. SUMATRIPTAN. [Concomitant]
     Active Substance: SUMATRIPTAN
  11. TRIAMCINOLONE [Concomitant]
     Active Substance: TRIAMCINOLONE
  12. XYREM [Suspect]
     Active Substance: SODIUM OXYBATE
     Dosage: DOSE ADJUSTMENT
     Route: 048
     Dates: start: 201304, end: 201604
  13. CALCITRIOL. [Concomitant]
     Active Substance: CALCITRIOL
  14. PERCOCET [Concomitant]
     Active Substance: ACETAMINOPHEN\OXYCODONE HYDROCHLORIDE
  15. EPIPEN [Concomitant]
     Active Substance: EPINEPHRINE
  16. IBUPROFEN. [Concomitant]
     Active Substance: IBUPROFEN
  17. LYRICA [Concomitant]
     Active Substance: PREGABALIN
  18. METOPROLOL. [Concomitant]
     Active Substance: METOPROLOL
  19. ALPRAZOLAM. [Concomitant]
     Active Substance: ALPRAZOLAM
  20. TESTOSTERONE CYPIONATE. [Concomitant]
     Active Substance: TESTOSTERONE CYPIONATE
  21. ESTRACE [Concomitant]
     Active Substance: ESTRADIOL
  22. VIIBRYD [Concomitant]
     Active Substance: VILAZODONE HYDROCHLORIDE
  23. HYDROCHLOROTHIAZIDE. [Concomitant]
     Active Substance: HYDROCHLOROTHIAZIDE
  24. SYNTHROID [Concomitant]
     Active Substance: LEVOTHYROXINE SODIUM
  25. FERREX [Concomitant]
     Active Substance: FERRIC POLYSACCHARIDE COMPLEX
  26. MOBIC [Concomitant]
     Active Substance: MELOXICAM
  27. XANAX [Concomitant]
     Active Substance: ALPRAZOLAM
  28. PRISTIQ EXTENDED-RELEASE [Concomitant]
     Active Substance: DESVENLAFAXINE SUCCINATE
  29. KEFLEX-C [Concomitant]
     Active Substance: CEPHALEXIN
  30. POTASSIUM CL [Concomitant]
     Active Substance: POTASSIUM CHLORIDE
  31. XYREM [Suspect]
     Active Substance: SODIUM OXYBATE
     Indication: NARCOLEPSY
     Dosage: 2.25 G, BID
     Route: 048
     Dates: start: 201303, end: 201304
  32. XYREM [Suspect]
     Active Substance: SODIUM OXYBATE
     Dosage: 3.75 G, BID
     Route: 048
     Dates: start: 201604, end: 2018
  33. CLOBETASOL [Concomitant]
     Active Substance: CLOBETASOL
  34. PRAMIPEXOLE. [Concomitant]
     Active Substance: PRAMIPEXOLE
  35. PROGESTERONE. [Concomitant]
     Active Substance: PROGESTERONE
  36. LOSARTAN POTASSIUM. [Concomitant]
     Active Substance: LOSARTAN POTASSIUM
  37. ADDERALL [Concomitant]
     Active Substance: AMPHETAMINE ASPARTATE\AMPHETAMINE SULFATE\DEXTROAMPHETAMINE SACCHARATE\DEXTROAMPHETAMINE SULFATE
  38. EVISTA [Concomitant]
     Active Substance: RALOXIFENE HYDROCHLORIDE
  39. NUVIGIL [Concomitant]
     Active Substance: ARMODAFINIL

REACTIONS (2)
  - Blood calcium decreased [Unknown]
  - Scoliosis [Not Recovered/Not Resolved]

NARRATIVE: CASE EVENT DATE: 201809
